FAERS Safety Report 26068438 (Version 1)
Quarter: 2025Q4

REPORT INFORMATION
  Report Type: Spontaneous
  Country: LK (occurrence: LK)
  Receive Date: 20251120
  Receipt Date: 20251120
  Transmission Date: 20260117
  Serious: Yes (Hospitalization)
  Sender: Steriscience PTE
  Company Number: LK-STERISCIENCE B.V.-2025-ST-001622

PATIENT
  Age: 45 Year
  Sex: Female

DRUGS (2)
  1. SODIUM BICARBONATE [Suspect]
     Active Substance: SODIUM BICARBONATE
     Indication: Metabolic acidosis
     Dosage: UNK
     Route: 042
  2. ACETAMINOPHEN [Concomitant]
     Active Substance: ACETAMINOPHEN
     Indication: Pelvic pain
     Dosage: RECEIVED 2?3G DAILY OVER 6 MONTHS
     Route: 048

REACTIONS (2)
  - Respiratory fatigue [None]
  - Drug ineffective [Unknown]
